FAERS Safety Report 14322061 (Version 1)
Quarter: 2017Q4

REPORT INFORMATION
  Report Type: Spontaneous
  Country: US (occurrence: US)
  Receive Date: 20171225
  Receipt Date: 20171225
  Transmission Date: 20180321
  Serious: Yes (Hospitalization, Other)
  Sender: FDA-Public Use
  Company Number: US-GLENMARK PHARMACEUTICALS-2017GMK030091

PATIENT

DRUGS (3)
  1. ONDANSETRON HYDROCHLORIDE TABLETS [Suspect]
     Active Substance: ONDANSETRON HYDROCHLORIDE
     Indication: VOMITING
  2. DIPHENOXYLATE/ATROPINE [Suspect]
     Active Substance: ATROPINE\DIPHENOXYLATE
     Indication: DIARRHOEA
     Dosage: 2.5 MG, (TWO 2.5MG TABLETS BY MOUTH IMMEDIATELY AND THEN EVERY 4 HOURS AS NEEDED)
     Route: 048
     Dates: start: 20170407, end: 20170408
  3. ONDANSETRON HYDROCHLORIDE TABLETS [Suspect]
     Active Substance: ONDANSETRON HYDROCHLORIDE
     Indication: NAUSEA
     Dosage: 8 MG, (EVERY 8 HOURS AS NEEDED)
     Route: 048
     Dates: start: 20170407

REACTIONS (4)
  - Hypertonic bladder [Not Recovered/Not Resolved]
  - Renal failure [Unknown]
  - Clostridium difficile colitis [Recovered/Resolved]
  - Urinary tract infection [Recovered/Resolved]

NARRATIVE: CASE EVENT DATE: 201704
